FAERS Safety Report 4757540-5 (Version None)
Quarter: 2005Q3

REPORT INFORMATION
  Report Type: 
  Country: None (occurrence: None)
  Receive Date: 20050830
  Receipt Date: 20050826
  Transmission Date: 20060218
  Serious: Yes (Other)
  Sender: FDA-Public Use
  Company Number: 200510502BNE

PATIENT
  Age: 57 Year
  Sex: Female
  Weight: 77 kg

DRUGS (5)
  1. CIPROFLOXACIN [Suspect]
     Indication: RHEUMATOID ARTHRITIS
     Dosage: BID, ORAL
     Route: 048
     Dates: start: 20050523, end: 20050530
  2. MOXIFLOXACIN HCL [Suspect]
     Indication: RHEUMATOID ARTHRITIS
     Dosage: QD
     Dates: start: 20050721
  3. OMEPRAZOLE [Concomitant]
  4. DICLOFENAC [Concomitant]
  5. PREDNISOLONE [Concomitant]

REACTIONS (2)
  - CONDITION AGGRAVATED [None]
  - RHEUMATOID ARTHRITIS [None]
